FAERS Safety Report 7902946-6 (Version None)
Quarter: 2011Q4

REPORT INFORMATION
  Report Type: 
  Country: None (occurrence: None)
  Receive Date: 20111109
  Receipt Date: 20111031
  Transmission Date: 20120403
  Serious: Yes (Hospitalization)
  Sender: FDA-Public Use
  Company Number: US-JNJFOC-20110807214

PATIENT
  Sex: Female
  Weight: 75.75 kg

DRUGS (5)
  1. ZANTAC [Concomitant]
     Indication: PREMEDICATION
     Route: 042
     Dates: start: 20110316, end: 20110930
  2. DECADRON [Concomitant]
     Indication: PREMEDICATION
     Route: 042
     Dates: start: 20110316, end: 20110930
  3. ZOFRAN [Concomitant]
     Indication: PREMEDICATION
     Route: 042
     Dates: start: 20110316, end: 20110930
  4. DOXORUBICIN HCL [Suspect]
     Indication: OVARIAN CANCER RECURRENT
     Route: 042
     Dates: start: 20110316, end: 20110930
  5. BENADRYL [Concomitant]
     Indication: PREMEDICATION
     Route: 042
     Dates: start: 20110316, end: 20110930

REACTIONS (11)
  - COUGH [None]
  - FEELING ABNORMAL [None]
  - ASTHENIA [None]
  - DYSPNOEA [None]
  - LUNG DISORDER [None]
  - RESPIRATORY TRACT IRRITATION [None]
  - DIZZINESS [None]
  - PRODUCT QUALITY ISSUE [None]
  - INCORRECT DOSE ADMINISTERED [None]
  - RED BLOOD CELL COUNT DECREASED [None]
  - FATIGUE [None]
